FAERS Safety Report 15894175 (Version 2)
Quarter: 2019Q2

REPORT INFORMATION
  Report Type: Report from Study
  Country: None (occurrence: US)
  Receive Date: 20190131
  Receipt Date: 20190401
  Transmission Date: 20190711
  Serious: Yes (Hospitalization)
  Sender: FDA-Public Use
  Company Number: US-ABBVIE-19K-163-2643513-00

PATIENT
  Age: 29 Year
  Sex: Male
  Weight: 52.21 kg

DRUGS (1)
  1. HUMIRA [Suspect]
     Active Substance: ADALIMUMAB
     Indication: CROHN^S DISEASE
     Route: 058
     Dates: start: 20180817, end: 20181026

REACTIONS (8)
  - Tremor [Unknown]
  - Hyperhidrosis [Unknown]
  - Anxiety [Recovering/Resolving]
  - Palpitations [Unknown]
  - Insomnia [Unknown]
  - Dyspnoea [Unknown]
  - Depression [Unknown]
  - Nausea [Unknown]
